FAERS Safety Report 15629704 (Version 1)
Quarter: 2018Q4

REPORT INFORMATION
  Report Type: Spontaneous
  Country: US (occurrence: US)
  Receive Date: 20181117
  Receipt Date: 20181117
  Transmission Date: 20190205
  Serious: Yes (Other)
  Sender: FDA-Public Use
  Company Number: US-ROCHE-2216122

PATIENT
  Sex: Female
  Weight: 78.54 kg

DRUGS (4)
  1. ESBRIET [Suspect]
     Active Substance: PIRFENIDONE
     Indication: PULMONARY FIBROSIS
     Dosage: 1 CAPLET DAYS 1 THROUGH 7,ONGOING :YES
     Route: 048
  2. ESBRIET [Suspect]
     Active Substance: PIRFENIDONE
     Dosage: 2 CAPLET, DAYS 8 THROUGH 14
     Route: 048
  3. ZITHROMAX [Concomitant]
     Active Substance: AZITHROMYCIN DIHYDRATE
     Dosage: ONGOING:NO
     Route: 065
     Dates: start: 20181109
  4. ESBRIET [Suspect]
     Active Substance: PIRFENIDONE
     Dosage: 3 CAPLETS, DAYS 15 THROUGH 21
     Route: 048

REACTIONS (4)
  - Rales [Unknown]
  - Blood urine present [Not Recovered/Not Resolved]
  - Nephrolithiasis [Not Recovered/Not Resolved]
  - Bronchitis [Unknown]
